FAERS Safety Report 18808984 (Version 1)
Quarter: 2021Q1

REPORT INFORMATION
  Report Type: Report from Study
  Country: MX (occurrence: MX)
  Receive Date: 20210129
  Receipt Date: 20210129
  Transmission Date: 20210419
  Serious: Yes (Death)
  Sender: FDA-Public Use
  Company Number: NVSC2021MX020873

PATIENT
  Age: 38 Year
  Sex: Male

DRUGS (1)
  1. TASIGNA [Suspect]
     Active Substance: NILOTINIB
     Indication: CHRONIC MYELOID LEUKAEMIA
     Dosage: 800 MG, QD (1 ONCE DAILY)
     Route: 048
     Dates: end: 20210111

REACTIONS (7)
  - Off label use [Unknown]
  - Decreased appetite [Unknown]
  - Muscular weakness [Unknown]
  - Pallor [Unknown]
  - Fatigue [Unknown]
  - Respiratory arrest [Fatal]
  - Rash [Unknown]

NARRATIVE: CASE EVENT DATE: 20210112
